FAERS Safety Report 6446194-8 (Version None)
Quarter: 2009Q4

REPORT INFORMATION
  Report Type: 
  Country: None (occurrence: None)
  Receive Date: 20091119
  Receipt Date: 20091111
  Transmission Date: 20100525
  Serious: Yes (Other)
  Sender: FDA-Public Use
  Company Number: CA-JNJFOC-20091104349

PATIENT
  Sex: Female

DRUGS (3)
  1. MONISTAT 3 DAY TREATMENT [Suspect]
     Indication: FUNGAL INFECTION
     Route: 067
     Dates: start: 20091110, end: 20091110
  2. MONISTAT 3 DAY TREATMENT [Suspect]
     Route: 061
  3. ALESSE [Suspect]
     Indication: DRUG USE FOR UNKNOWN INDICATION
     Route: 065

REACTIONS (2)
  - CAUSTIC INJURY [None]
  - VAGINAL HAEMORRHAGE [None]
